FAERS Safety Report 21623768 (Version 1)
Quarter: 2022Q4

REPORT INFORMATION
  Report Type: Spontaneous
  Country: US (occurrence: US)
  Receive Date: 20221121
  Receipt Date: 20221121
  Transmission Date: 20230112
  Serious: No
  Sender: FDA-Public Use
  Company Number: US-PFIZER INC-2019511794

PATIENT
  Age: 75 Year
  Sex: Female

DRUGS (2)
  1. ESTRING [Suspect]
     Active Substance: ESTRADIOL
     Dosage: UNK (1 FOR 90 DAYS)
  2. ESTRING [Suspect]
     Active Substance: ESTRADIOL
     Dosage: 2 MG, EVERY 3 MONTHS (1 EA/ 30 DAYS)

REACTIONS (2)
  - Frustration tolerance decreased [Unknown]
  - Product prescribing issue [Unknown]
